FAERS Safety Report 9080207 (Version 1)
Quarter: 2013Q1

REPORT INFORMATION
  Report Type: Report from Study
  Country: US (occurrence: US)
  Receive Date: 20130130
  Receipt Date: 20130130
  Transmission Date: 20140127
  Serious: No
  Sender: FDA-Public Use
  Company Number: US-ABBOTT-12P-163-0977206-00

PATIENT
  Sex: Male

DRUGS (3)
  1. HUMIRA [Suspect]
     Indication: ANKYLOSING SPONDYLITIS
     Dates: start: 201103
  2. HUMIRA [Suspect]
     Indication: IRITIS
  3. TENORMIN IV [Concomitant]
     Indication: HEART RATE INCREASED

REACTIONS (3)
  - Off label use [Not Recovered/Not Resolved]
  - Skin infection [Recovered/Resolved]
  - Bronchitis [Not Recovered/Not Resolved]
